FAERS Safety Report 4804112-X (Version None)
Quarter: 2005Q4

REPORT INFORMATION
  Report Type: 
  Country: None (occurrence: None)
  Receive Date: 20051018
  Receipt Date: 20051018
  Transmission Date: 20060501
  Serious: Yes (Life-Threatening)
  Sender: FDA-Public Use
  Company Number: None

PATIENT
  Age: 55 Year
  Sex: Female
  Weight: 49.8957 kg

DRUGS (2)
  1. MEFLOQUINE [Suspect]
     Indication: FOREIGN TRAVEL
     Dosage: 1 EVERY WEEK
  2. WHITE SIDEL: GP 118 [Concomitant]

REACTIONS (4)
  - ANXIETY [None]
  - HALLUCINATION [None]
  - PARANOIA [None]
  - SUICIDAL IDEATION [None]
